FAERS Safety Report 5191327-7 (Version None)
Quarter: 2006Q4

REPORT INFORMATION
  Report Type: 
  Country: None (occurrence: None)
  Receive Date: 20061226
  Receipt Date: 20060816
  Transmission Date: 20070319
  Serious: Yes (Hospitalization)
  Sender: FDA-Public Use
  Company Number: FR-BRISTOL-MYERS SQUIBB COMPANY-13480363

PATIENT
  Age: 45 Year
  Sex: Male
  Weight: 56 kg

DRUGS (7)
  1. REYATAZ [Suspect]
     Route: 048
     Dates: start: 20060601
  2. VIDEX [Suspect]
     Dates: start: 20060601
  3. NORVIR [Suspect]
     Dates: start: 20060601
  4. ZIAGEN [Concomitant]
     Dates: start: 20060601
  5. FOSAMAX [Concomitant]
  6. BACTRIM [Concomitant]
  7. VITAMIN D3 [Concomitant]

REACTIONS (6)
  - ALANINE AMINOTRANSFERASE INCREASED [None]
  - ASPARTATE AMINOTRANSFERASE INCREASED [None]
  - BLOOD BILIRUBIN INCREASED [None]
  - DISEASE PROGRESSION [None]
  - RASH [None]
  - SKIN REACTION [None]
